FAERS Safety Report 4434258-X (Version None)
Quarter: 2004Q3

REPORT INFORMATION
  Report Type: 
  Country: None (occurrence: None)
  Receive Date: 20040825
  Receipt Date: 20040810
  Transmission Date: 20050211
  Serious: Yes (Hospitalization)
  Sender: FDA-Public Use
  Company Number: 237838

PATIENT
  Age: 85 Year
  Sex: Female

DRUGS (9)
  1. MIXTARD 30 PENFILL (INSULIN HUMAN) SUSPENSION FOR INJECTION, 100IU/ML [Suspect]
     Indication: DIABETES MELLITUS
  2. STABLON (TIANEPTINE) [Concomitant]
  3. CAPTOPRIL [Concomitant]
  4. LASIX [Concomitant]
  5. ASPIRIN [Concomitant]
  6. NITROGLYCERIN [Concomitant]
  7. HYPERIUM (RILMENIDINE) [Concomitant]
  8. ARICEPT [Concomitant]
  9. CALCIDIA (CALCIUM CARBONATE) [Concomitant]

REACTIONS (4)
  - CONFUSIONAL STATE [None]
  - FALL [None]
  - HYPOGLYCAEMIA [None]
  - MALAISE [None]
